FAERS Safety Report 7367350-0 (Version None)
Quarter: 2011Q1

REPORT INFORMATION
  Report Type: 
  Country: None (occurrence: None)
  Receive Date: 20110311
  Receipt Date: 20110224
  Transmission Date: 20110831
  Serious: Yes (Hospitalization, Other)
  Sender: FDA-Public Use
  Company Number: 2011SP008842

PATIENT
  Age: 40 Year
  Sex: Male
  Weight: 75.2971 kg

DRUGS (8)
  1. CARDIZEM CD [Concomitant]
  2. CESAMET [Concomitant]
  3. LASIX [Concomitant]
  4. DOM-PAROXETINE [Concomitant]
  5. HYDROXYZINE [Concomitant]
  6. NOVO-BISOPROLOL [Concomitant]
  7. AERIUS (DESLORATADINE /01398501/) [Suspect]
     Indication: PRODUCT USED FOR UNKNOWN INDICATION
     Dosage: ONCE;PO; QD;PO
     Route: 048
  8. NON-PANTOPRAZOLE [Concomitant]

REACTIONS (3)
  - TACHYCARDIA [None]
  - LOSS OF CONSCIOUSNESS [None]
  - PALPITATIONS [None]
